FAERS Safety Report 11012527 (Version 1)
Quarter: 2015Q2

REPORT INFORMATION
  Report Type: Spontaneous
  Country: US (occurrence: None)
  Receive Date: 20150407
  Receipt Date: 20150407
  Transmission Date: 20150821
  Serious: Yes (Hospitalization, Other)
  Sender: FDA-Public Use
  Company Number: LH201400407

PATIENT
  Age: 26 Year
  Sex: Female

DRUGS (7)
  1. MAKENA [Suspect]
     Active Substance: HYDROXYPROGESTERONE CAPROATE
     Indication: PREMATURE DELIVERY
     Route: 030
     Dates: start: 20140707, end: 20141019
  2. RETINOL [Concomitant]
     Active Substance: RETINOL
  3. TOCOPHEROL [Concomitant]
     Active Substance: TOCOPHEROL
  4. NICOTINIC ACID [Concomitant]
     Active Substance: NIACIN
  5. PRENATAL VITAMINS (ASCORBIC ACID, BIOTIN, MINERALS NOS, NICOTINIC ACID, RETINOL, TOCOPHEROL, VITAMIN B NOS, VITAMIN D NOS) [Concomitant]
  6. VITAMIN B NOS [Concomitant]
     Active Substance: VITAMIN B
  7. VITAMIN D [Concomitant]
     Active Substance: CHOLECALCIFEROL

REACTIONS (3)
  - Premature labour [None]
  - Premature delivery [None]
  - Shortened cervix [None]

NARRATIVE: CASE EVENT DATE: 20140818
